FAERS Safety Report 11108334 (Version 8)
Quarter: 2017Q1

REPORT INFORMATION
  Report Type: Report from Study
  Country: AR (occurrence: AR)
  Receive Date: 20150512
  Receipt Date: 20170210
  Transmission Date: 20170428
  Serious: Yes (Hospitalization, Other)
  Sender: FDA-Public Use
  Company Number: PHHY2015AR057019

PATIENT
  Age: 29 Year
  Sex: Female

DRUGS (8)
  1. SANDOSTATIN LAR DEPOT [Suspect]
     Active Substance: OCTREOTIDE ACETATE
     Dosage: 20 MG, UNK
     Route: 065
     Dates: start: 201603, end: 201610
  2. CABERGOLINE. [Concomitant]
     Active Substance: CABERGOLINE
     Indication: PRODUCT USED FOR UNKNOWN INDICATION
     Route: 065
  3. SANDOSTATIN LAR DEPOT [Suspect]
     Active Substance: OCTREOTIDE ACETATE
     Dosage: 20 MG, UNK
     Route: 065
     Dates: start: 201505, end: 201602
  4. FLUOXETINE [Concomitant]
     Active Substance: FLUOXETINE HYDROCHLORIDE
     Indication: PRODUCT USED FOR UNKNOWN INDICATION
     Dosage: 20 MG, QD
     Route: 065
  5. OMEPRAZOLE. [Concomitant]
     Active Substance: OMEPRAZOLE
     Indication: PRODUCT USED FOR UNKNOWN INDICATION
     Route: 065
  6. METFORMIN [Concomitant]
     Active Substance: METFORMIN HYDROCHLORIDE
     Indication: DIABETES MELLITUS
     Dosage: 2 DF, QD
     Route: 065
  7. TOPIRAMATE. [Concomitant]
     Active Substance: TOPIRAMATE
     Indication: PRODUCT USED FOR UNKNOWN INDICATION
     Dosage: 25 MG, QD
     Route: 065
  8. SANDOSTATIN LAR DEPOT [Suspect]
     Active Substance: OCTREOTIDE ACETATE
     Indication: ACROMEGALY
     Dosage: 20 MG, UNK
     Route: 030
     Dates: start: 201412, end: 201412

REACTIONS (38)
  - Diabetes insipidus [Recovering/Resolving]
  - Swelling face [Not Recovered/Not Resolved]
  - Osteoarthritis [Not Recovered/Not Resolved]
  - Feeling abnormal [Not Recovered/Not Resolved]
  - Sensory disturbance [Unknown]
  - Hypoaesthesia [Not Recovered/Not Resolved]
  - Headache [Not Recovered/Not Resolved]
  - Neoplasm progression [Not Recovered/Not Resolved]
  - Peripheral swelling [Not Recovered/Not Resolved]
  - Tremor [Recovered/Resolved]
  - Malaise [Recovered/Resolved]
  - Paraesthesia [Recovering/Resolving]
  - Amenorrhoea [Recovering/Resolving]
  - Gait disturbance [Unknown]
  - Nasal injury [Recovering/Resolving]
  - Hypoglycaemia [Recovered/Resolved]
  - Anaemia [Recovered/Resolved]
  - Pituitary tumour [Recovering/Resolving]
  - Meningitis [Recovering/Resolving]
  - Arthralgia [Unknown]
  - Nose deformity [Not Recovered/Not Resolved]
  - Hormone level abnormal [Unknown]
  - Weight loss poor [Not Recovered/Not Resolved]
  - Thyroid disorder [Recovering/Resolving]
  - Cerebrospinal fistula [Recovering/Resolving]
  - Hypertension [Recovered/Resolved]
  - Muscle spasms [Not Recovered/Not Resolved]
  - Fatigue [Unknown]
  - Vaginal haemorrhage [Not Recovered/Not Resolved]
  - Pollakiuria [Recovered/Resolved]
  - Tension [Unknown]
  - Weight increased [Not Recovered/Not Resolved]
  - Renal failure [Recovering/Resolving]
  - Weight decreased [Unknown]
  - Pain in extremity [Not Recovered/Not Resolved]
  - Bronchial disorder [Recovering/Resolving]
  - Throat tightness [Unknown]
  - Swelling [Not Recovered/Not Resolved]

NARRATIVE: CASE EVENT DATE: 2014
